FAERS Safety Report 10111059 (Version 1)
Quarter: 2014Q2

REPORT INFORMATION
  Report Type: Spontaneous
  Country: US (occurrence: None)
  Receive Date: 20140424
  Receipt Date: 20140424
  Transmission Date: 20141212
  Serious: No
  Sender: FDA-Public Use
  Company Number: None

PATIENT
  Age: 83 Year
  Sex: Female
  Weight: 81.65 kg

DRUGS (15)
  1. JANUVIA [Suspect]
     Indication: DRUG HYPERSENSITIVITY
     Route: 048
     Dates: start: 20140313, end: 20140404
  2. JANUVIA [Suspect]
     Indication: DIABETES MELLITUS
     Route: 048
     Dates: start: 20140313, end: 20140404
  3. SYNTHROID [Concomitant]
  4. TAMAZAPAM [Concomitant]
  5. DILTEAZEM [Concomitant]
  6. PROAIR [Concomitant]
  7. ANASTROZOLE [Concomitant]
  8. CPAP MASK [Concomitant]
  9. HUMOLOG 15/25 [Concomitant]
  10. SPIRIVA [Concomitant]
  11. CALCIUM [Concomitant]
  12. COQ10 [Concomitant]
  13. VITAMIN D [Concomitant]
  14. PRESERVISION (LUTEIN) [Concomitant]
  15. ASPIRIN [Concomitant]

REACTIONS (5)
  - Flatulence [None]
  - Hyperhidrosis [None]
  - Pruritus [None]
  - Pollakiuria [None]
  - Muscle spasms [None]
